FAERS Safety Report 9174942 (Version 5)
Quarter: 2013Q3

REPORT INFORMATION
  Report Type: Spontaneous
  Country: US (occurrence: US)
  Receive Date: 20130320
  Receipt Date: 20130820
  Transmission Date: 20140515
  Serious: No
  Sender: FDA-Public Use
  Company Number: US-009507513-1303USA007147

PATIENT
  Sex: Male

DRUGS (5)
  1. PEG-INTRON [Suspect]
     Indication: HEPATITIS C
     Dosage: VIAL 0.5 ML, UNK
     Dates: start: 20130225
  2. PEG-INTRON [Suspect]
     Dosage: VIAL 3.25 ML, UNK
     Dates: start: 2013, end: 20130808
  3. REBETOL [Suspect]
     Indication: HEPATITIS C
     Dosage: 5 PILLS DAILY
     Route: 048
     Dates: start: 20130225
  4. REBETOL [Suspect]
     Dosage: 2 PILLS DAILY
     Route: 048
     Dates: start: 2013, end: 20130808
  5. VICTRELIS [Suspect]
     Indication: HEPATITIS C
     Dosage: UNK
     Route: 048
     Dates: start: 20130325, end: 20130808

REACTIONS (17)
  - Laboratory test abnormal [Unknown]
  - Influenza like illness [Unknown]
  - Fatigue [Unknown]
  - Myalgia [Unknown]
  - Fatigue [Unknown]
  - Dyspnoea [Unknown]
  - Headache [Unknown]
  - Myalgia [Unknown]
  - Musculoskeletal stiffness [Unknown]
  - Fatigue [Unknown]
  - Haemoglobin decreased [Unknown]
  - Anaemia [Unknown]
  - Fatigue [Unknown]
  - Drug ineffective [Unknown]
  - Blood count abnormal [Unknown]
  - Dyspnoea [Unknown]
  - Therapeutic response decreased [Unknown]
